FAERS Safety Report 6433165-0 (Version None)
Quarter: 2009Q4

REPORT INFORMATION
  Report Type: 
  Country: None (occurrence: None)
  Receive Date: 20091109
  Receipt Date: 20091029
  Transmission Date: 20100525
  Serious: Yes (Hospitalization, Other)
  Sender: FDA-Public Use
  Company Number: PHEH2009US15021

PATIENT
  Sex: Female

DRUGS (18)
  1. EXJADE [Suspect]
     Dosage: UNK
  2. OXYCONTIN [Concomitant]
  3. OXYCODONE [Concomitant]
  4. LASIX [Concomitant]
  5. SIMVASTATIN [Concomitant]
  6. FOLIC ACID [Concomitant]
  7. LISINOPRIL [Concomitant]
  8. COLACE [Concomitant]
  9. MEGACE [Concomitant]
  10. POTASSIUM CHLORIDE [Concomitant]
  11. DEXAMETHASONE [Concomitant]
  12. PROTONIX [Concomitant]
  13. BIZ INJECTION [Concomitant]
  14. LORTAB [Concomitant]
  15. ZOFRAN [Concomitant]
  16. MELPHALAN [Concomitant]
     Dosage: UNK
     Dates: end: 20090921
  17. PREDNISONE [Concomitant]
  18. REVLIMID [Concomitant]
     Dosage: UNK
     Dates: end: 20091013

REACTIONS (8)
  - DYSSTASIA [None]
  - ELECTROLYTE IMBALANCE [None]
  - HYPERBILIRUBINAEMIA [None]
  - HYPOTENSION [None]
  - MUSCULAR WEAKNESS [None]
  - PANCYTOPENIA [None]
  - SUPRAVENTRICULAR TACHYCARDIA [None]
  - URINARY TRACT INFECTION [None]
